FAERS Safety Report 6464384-5 (Version None)
Quarter: 2009Q4

REPORT INFORMATION
  Report Type: 
  Country: None (occurrence: None)
  Receive Date: 20091201
  Receipt Date: 20090309
  Transmission Date: 20100525
  Serious: No
  Sender: FDA-Public Use
  Company Number: US-AMGEN-COG333027

PATIENT
  Sex: Male

DRUGS (3)
  1. ENBREL [Suspect]
     Indication: PSORIASIS
     Route: 058
     Dates: start: 20030101
  2. ENBREL [Suspect]
     Indication: RHEUMATOID ARTHRITIS
  3. METHOTREXATE [Concomitant]
     Route: 048

REACTIONS (7)
  - ARTHRALGIA [None]
  - CHONDROPATHY [None]
  - FATIGUE [None]
  - HYPERTENSION [None]
  - INJECTION SITE PAIN [None]
  - RHEUMATOID ARTHRITIS [None]
  - RHEUMATOID NODULE [None]
